FAERS Safety Report 7378304-2 (Version None)
Quarter: 2011Q1

REPORT INFORMATION
  Report Type: 
  Country: None (occurrence: None)
  Receive Date: 20110328
  Receipt Date: 20110315
  Transmission Date: 20110831
  Serious: Yes (Other)
  Sender: FDA-Public Use
  Company Number: US-JNJFOC-20110306936

PATIENT
  Sex: Female
  Weight: 70.31 kg

DRUGS (3)
  1. REMICADE [Suspect]
     Indication: CROHN'S DISEASE
     Route: 042
  2. ACETAMINOPHEN [Concomitant]
     Indication: PREMEDICATION
  3. ALLEGRA [Concomitant]
     Indication: PREMEDICATION
     Dosage: 180U
     Route: 065

REACTIONS (5)
  - SKIN DISCOLOURATION [None]
  - INFUSION RELATED REACTION [None]
  - CHEST DISCOMFORT [None]
  - FEELING HOT [None]
  - RASH [None]
